FAERS Safety Report 15470398 (Version 1)
Quarter: 2018Q4

REPORT INFORMATION
  Report Type: Spontaneous
  Country: HR (occurrence: HR)
  Receive Date: 20181005
  Receipt Date: 20181005
  Transmission Date: 20190205
  Serious: Yes (Hospitalization)
  Sender: FDA-Public Use
  Company Number: HR-SA-2018SA271805

PATIENT
  Age: 47 Year
  Sex: Female

DRUGS (4)
  1. CALCIUM FOLINATE [Suspect]
     Active Substance: LEUCOVORIN CALCIUM
     Indication: RECTAL CANCER METASTATIC
     Dosage: 993 MG
     Route: 042
     Dates: start: 201803
  2. IRINOTECAN [Suspect]
     Active Substance: IRINOTECAN
     Indication: RECTAL CANCER METASTATIC
     Dosage: 20 MG/ML; 447 MG
     Route: 042
     Dates: start: 201803
  3. FLUOROURACIL. [Concomitant]
     Active Substance: FLUOROURACIL
     Indication: RECTAL CANCER
     Dosage: 50 MG/ML; 993 MG BOLUS I 5960 MG PUTEM KONTEJNERA
     Route: 042
     Dates: start: 201803
  4. ZALTRAP [Suspect]
     Active Substance: ZIV-AFLIBERCEPT
     Indication: RECTAL CANCER METASTATIC
     Route: 042
     Dates: start: 20180328, end: 20180731

REACTIONS (12)
  - Oedema peripheral [Recovering/Resolving]
  - Aspartate aminotransferase increased [Recovering/Resolving]
  - Hypertension [Recovering/Resolving]
  - Blood glucose increased [Recovering/Resolving]
  - Haematuria [Recovering/Resolving]
  - Blood urea increased [Recovering/Resolving]
  - Febrile neutropenia [Recovering/Resolving]
  - Pain in extremity [Unknown]
  - Blood creatinine increased [Recovering/Resolving]
  - Proteinuria [Recovering/Resolving]
  - Blood uric acid increased [Recovering/Resolving]
  - White blood cell count decreased [Recovering/Resolving]

NARRATIVE: CASE EVENT DATE: 201803
